FAERS Safety Report 5131343-4 (Version None)
Quarter: 2006Q4

REPORT INFORMATION
  Report Type: 
  Country: None (occurrence: None)
  Receive Date: 20061020
  Receipt Date: 20061006
  Transmission Date: 20070319
  Serious: Yes (Other)
  Sender: FDA-Public Use
  Company Number: PHBS2006BR15692

PATIENT
  Age: 39 Year
  Sex: Male
  Weight: 80 kg

DRUGS (1)
  1. GLEEVEC [Suspect]
     Indication: CHRONIC MYELOID LEUKAEMIA
     Dosage: 300 MG, BID
     Route: 048
     Dates: start: 20041001

REACTIONS (10)
  - CHEST PAIN [None]
  - EYE SWELLING [None]
  - HYPOAESTHESIA [None]
  - OEDEMA PERIPHERAL [None]
  - SKIN EXFOLIATION [None]
  - SKIN HYPERTROPHY [None]
  - TONGUE DISCOLOURATION [None]
  - TONGUE DISORDER [None]
  - TONGUE NEOPLASM [None]
  - WEIGHT DECREASED [None]
